FAERS Safety Report 9831055 (Version 2)
Quarter: 2014Q1

REPORT INFORMATION
  Report Type: Report from Study
  Country: CA (occurrence: CA)
  Receive Date: 20140120
  Receipt Date: 20140121
  Transmission Date: 20141002
  Serious: Yes (Hospitalization)
  Sender: FDA-Public Use
  Company Number: CA-ROCHE-1335045

PATIENT
  Age: 37 Year
  Sex: Male

DRUGS (1)
  1. PULMOZYME [Suspect]
     Indication: CYSTIC FIBROSIS
     Route: 065
     Dates: start: 201307

REACTIONS (1)
  - Lung transplant [Unknown]
